FAERS Safety Report 7399873-2 (Version None)
Quarter: 2011Q2

REPORT INFORMATION
  Report Type: 
  Country: None (occurrence: None)
  Receive Date: 20110407
  Receipt Date: 20110329
  Transmission Date: 20111010
  Serious: Yes (Hospitalization)
  Sender: FDA-Public Use
  Company Number: US-SANOFI-AVENTIS-2011SA019207

PATIENT
  Age: 76 Year
  Sex: Female

DRUGS (8)
  1. HUMULIN R [Concomitant]
  2. COZAAR [Concomitant]
  3. MULTAQ [Suspect]
     Indication: ATRIAL FIBRILLATION
     Route: 048
     Dates: start: 20110101, end: 20110101
  4. CATAPRES-TTS-1 [Concomitant]
  5. LISINOPRIL [Concomitant]
  6. ALISKIREN [Concomitant]
  7. COUMADIN [Concomitant]
  8. ASPIRIN [Concomitant]

REACTIONS (8)
  - OEDEMA [None]
  - OXYGEN SATURATION DECREASED [None]
  - GLOMERULAR FILTRATION RATE ABNORMAL [None]
  - BLOOD CREATININE INCREASED [None]
  - BLOOD UREA INCREASED [None]
  - RENAL FAILURE [None]
  - CONDITION AGGRAVATED [None]
  - DYSPNOEA [None]
